FAERS Safety Report 7359153-8 (Version None)
Quarter: 2011Q1

REPORT INFORMATION
  Report Type: 
  Country: None (occurrence: None)
  Receive Date: 20110317
  Receipt Date: 20110310
  Transmission Date: 20110831
  Serious: Yes (Hospitalization)
  Sender: FDA-Public Use
  Company Number: US-GILEAD-2011-0037019

PATIENT
  Sex: Female
  Weight: 43.1 kg

DRUGS (2)
  1. LETAIRIS [Suspect]
     Indication: PRODUCT USED FOR UNKNOWN INDICATION
     Route: 048
     Dates: start: 20110110
  2. LETAIRIS [Suspect]
     Route: 048
     Dates: start: 20110310

REACTIONS (1)
  - MYOCARDIAL INFARCTION [None]
